FAERS Safety Report 16570969 (Version 1)
Quarter: 2019Q3

REPORT INFORMATION
  Report Type: Spontaneous
  Country: JP (occurrence: JP)
  Receive Date: 20190715
  Receipt Date: 20190715
  Transmission Date: 20191004
  Serious: Yes (Disabling, Other)
  Sender: FDA-Public Use
  Company Number: JP-PFIZER INC-2019160811

PATIENT
  Age: 64 Year
  Sex: Female

DRUGS (19)
  1. EFFEXOR [Suspect]
     Active Substance: VENLAFAXINE HYDROCHLORIDE
     Dosage: 75 MG, 1X/DAY
     Route: 048
     Dates: start: 20181127, end: 20181217
  2. LEXAPRO [Concomitant]
     Active Substance: ESCITALOPRAM OXALATE
     Dosage: 10, 1X/DAY
     Route: 048
     Dates: start: 20150928, end: 20151026
  3. EFFEXOR [Suspect]
     Active Substance: VENLAFAXINE HYDROCHLORIDE
     Dosage: 75 MG, 1X/DAY
     Route: 048
     Dates: start: 20190409, end: 20190422
  4. CONSTAN [ALPRAZOLAM] [Suspect]
     Active Substance: ALPRAZOLAM
     Dosage: 0.4, 2X/DAY
     Route: 048
     Dates: start: 20161003
  5. EFFEXOR [Suspect]
     Active Substance: VENLAFAXINE HYDROCHLORIDE
     Dosage: 37.5 MG, 1X/DAY
     Route: 048
     Dates: start: 20181218, end: 20190107
  6. EFFEXOR [Suspect]
     Active Substance: VENLAFAXINE HYDROCHLORIDE
     Dosage: 75 MG, 1X/DAY
     Route: 048
     Dates: start: 20190325, end: 20190408
  7. REMERON [Concomitant]
     Active Substance: MIRTAZAPINE
     Dosage: 45, 1X/DAY
     Route: 048
     Dates: start: 20170703
  8. EFFEXOR [Suspect]
     Active Substance: VENLAFAXINE HYDROCHLORIDE
     Dosage: 37.5 MG, 1X/DAY
     Route: 048
     Dates: start: 20181029, end: 20181126
  9. EFFEXOR [Suspect]
     Active Substance: VENLAFAXINE HYDROCHLORIDE
     Dosage: 37.5 MG, 1X/DAY
     Route: 048
     Dates: start: 20190325, end: 20190408
  10. LEXAPRO [Concomitant]
     Active Substance: ESCITALOPRAM OXALATE
     Dosage: 20, 1X/DAY
     Route: 048
     Dates: start: 20151027
  11. BELSOMRA [Concomitant]
     Active Substance: SUVOREXANT
     Dosage: 15, 1X/DAY
     Route: 048
     Dates: start: 20190422
  12. RISPERDAL [Concomitant]
     Active Substance: RISPERIDONE
     Dosage: 1, 1X/DAY
     Route: 048
     Dates: start: 20190325
  13. EFFEXOR [Suspect]
     Active Substance: VENLAFAXINE HYDROCHLORIDE
     Dosage: 75 MG, 1X/DAY
     Route: 048
     Dates: start: 20181218, end: 20190107
  14. LUNESTA [Suspect]
     Active Substance: ESZOPICLONE
     Dosage: 2, 1X/DAY
     Route: 048
     Dates: start: 20150126, end: 20190325
  15. ROZEREM [Concomitant]
     Active Substance: RAMELTEON
     Dosage: 8, 1X/DAY
     Route: 048
     Dates: start: 20190325
  16. EFFEXOR [Suspect]
     Active Substance: VENLAFAXINE HYDROCHLORIDE
     Dosage: 37.5 MG, 1X/DAY
     Route: 048
     Dates: start: 20190423, end: 20190513
  17. EFFEXOR [Suspect]
     Active Substance: VENLAFAXINE HYDROCHLORIDE
     Dosage: 150 MG, 1X/DAY
     Route: 048
     Dates: start: 20190108, end: 20190204
  18. SELENICA-R [Concomitant]
     Active Substance: VALPROATE SODIUM
     Dosage: 200, 1X/DAY
     Route: 048
     Dates: start: 20170410
  19. CYMBALTA [Concomitant]
     Active Substance: DULOXETINE HYDROCHLORIDE
     Dosage: UNK

REACTIONS (9)
  - Delirium [Recovered/Resolved]
  - Loss of consciousness [Unknown]
  - Mental disorder [Unknown]
  - Abnormal dreams [Recovered/Resolved]
  - Somnolence [Unknown]
  - Intentional self-injury [Recovered/Resolved]
  - Sleep talking [Recovering/Resolving]
  - Fall [Unknown]
  - Nightmare [Unknown]

NARRATIVE: CASE EVENT DATE: 20190204
